FAERS Safety Report 9198461 (Version 1)
Quarter: 2013Q1

REPORT INFORMATION
  Report Type: Spontaneous
  Country: US (occurrence: None)
  Receive Date: 20130327
  Receipt Date: 20130327
  Transmission Date: 20140127
  Serious: Yes (Other)
  Sender: FDA-Public Use
  Company Number: None

PATIENT
  Age: 79 Year
  Sex: Male
  Weight: 99.79 kg

DRUGS (20)
  1. TAMIFLU 75MG CAP GENETECH [Suspect]
     Indication: ANTIVIRAL PROPHYLAXIS
     Route: 048
     Dates: start: 20130314, end: 20130316
  2. ASA [Concomitant]
  3. VIT D [Concomitant]
  4. NAMENDA [Concomitant]
  5. DONEPEZIL [Concomitant]
  6. FISH OIL [Concomitant]
  7. FLUTICASONE NASAL SPRAY [Concomitant]
  8. ISORBIDE MONO ER [Concomitant]
  9. CACLIUM [Concomitant]
  10. LAMOTRIGINE [Concomitant]
  11. LORATIDINE [Concomitant]
  12. METOPROLOL [Concomitant]
  13. MONTELUKAST [Concomitant]
  14. PHENOBARBITAL [Concomitant]
  15. PRESERVISION AREDS [Concomitant]
  16. QUINAPRIL [Concomitant]
  17. RANITIDINE [Concomitant]
  18. TRAZODONE [Concomitant]
  19. VIT B 12 [Concomitant]
  20. ZOLPIDEM [Concomitant]

REACTIONS (1)
  - Convulsion [None]
